FAERS Safety Report 4431382-2 (Version None)
Quarter: 2004Q3

REPORT INFORMATION
  Report Type: 
  Country: None (occurrence: None)
  Receive Date: 20040824
  Receipt Date: 20040629
  Transmission Date: 20050211
  Serious: Yes (Hospitalization)
  Sender: FDA-Public Use
  Company Number: DE-ROCHE-372466

PATIENT
  Age: 40 Year
  Sex: Male
  Weight: 79.3 kg

DRUGS (2)
  1. PEGASYS [Suspect]
     Route: 065
  2. COPEGUS [Suspect]
     Dosage: DOSAGE REGIMEN REPORTED AS 3-0-2
     Route: 048

REACTIONS (9)
  - ACTIVATED PARTIAL THROMBOPLASTIN TIME PROLONGED [None]
  - ANTIBODY TEST POSITIVE [None]
  - ANTINUCLEAR ANTIBODY POSITIVE [None]
  - BLOOD FIBRINOGEN INCREASED [None]
  - CYTOMEGALOVIRUS ANTIBODY POSITIVE [None]
  - GRANULOCYTE COUNT INCREASED [None]
  - LYMPHOCYTE COUNT DECREASED [None]
  - PERICARDITIS [None]
  - UROBILIN URINE PRESENT [None]
